FAERS Safety Report 4533350-9 (Version None)
Quarter: 2004Q4

REPORT INFORMATION
  Report Type: 
  Country: None (occurrence: None)
  Receive Date: 20041210
  Receipt Date: 20040826
  Transmission Date: 20050328
  Serious: No
  Sender: FDA-Public Use
  Company Number: A03200402406

PATIENT
  Age: 72 Year
  Sex: Male

DRUGS (1)
  1. ELOXATIN [Suspect]
     Indication: COLON CANCER METASTATIC
     Dosage: INTRAVENOUS NOS
     Route: 042
     Dates: start: 20040501, end: 20040501

REACTIONS (4)
  - ABDOMINAL PAIN UPPER [None]
  - GASTRIC DISORDER [None]
  - HERPES SIMPLEX [None]
  - RHINORRHOEA [None]
